FAERS Safety Report 13366229 (Version 3)
Quarter: 2017Q2

REPORT INFORMATION
  Report Type: Report from Study
  Country: IL (occurrence: IL)
  Receive Date: 20170323
  Receipt Date: 20170405
  Transmission Date: 20170830
  Serious: Yes (Hospitalization, Other)
  Sender: FDA-Public Use
  Company Number: PHHY2017IL002250

PATIENT
  Sex: Female

DRUGS (1)
  1. AFINITOR [Suspect]
     Active Substance: EVEROLIMUS
     Indication: BREAST CANCER
     Dosage: 10 MG, QD
     Route: 048
     Dates: start: 20161224, end: 20170313

REACTIONS (17)
  - Pericardial effusion [Unknown]
  - Paraesthesia oral [Not Recovered/Not Resolved]
  - Breast cancer [Unknown]
  - Dysgeusia [Not Recovered/Not Resolved]
  - Oral pain [Not Recovered/Not Resolved]
  - Malignant pleural effusion [Not Recovered/Not Resolved]
  - Dyspnoea [Recovering/Resolving]
  - Lymphadenopathy [Not Recovered/Not Resolved]
  - Pain in extremity [Recovering/Resolving]
  - Back pain [Not Recovered/Not Resolved]
  - Cough [Not Recovered/Not Resolved]
  - Gingival swelling [Not Recovered/Not Resolved]
  - Malignant neoplasm progression [Unknown]
  - Glossodynia [Recovered/Resolved]
  - Oedema peripheral [Recovering/Resolving]
  - Musculoskeletal chest pain [Not Recovered/Not Resolved]
  - Skin lesion [Not Recovered/Not Resolved]
